FAERS Safety Report 5330025-3 (Version None)
Quarter: 2007Q2

REPORT INFORMATION
  Report Type: 
  Country: None (occurrence: None)
  Receive Date: 20070521
  Receipt Date: 20070514
  Transmission Date: 20071010
  Serious: Yes (Other)
  Sender: FDA-Public Use
  Company Number: D0052966A

PATIENT
  Age: 60 Year
  Sex: Female
  Weight: 74.8 kg

DRUGS (9)
  1. ARIXTRA [Suspect]
     Indication: HEPARIN-INDUCED THROMBOCYTOPENIA
     Dosage: 1.25MG PER DAY
     Route: 058
     Dates: start: 20070409, end: 20070413
  2. REFLUDAN [Suspect]
     Indication: HEPARIN-INDUCED THROMBOCYTOPENIA
     Route: 042
     Dates: start: 20070409
  3. FRAXIPARIN [Suspect]
     Indication: THROMBOSIS PROPHYLAXIS
     Dosage: .3ML PER DAY
     Route: 058
     Dates: start: 20070330, end: 20070408
  4. EUTHYROX [Concomitant]
     Indication: GOITRE
     Dosage: 150UG UNKNOWN
     Route: 048
  5. PERENTEROL [Concomitant]
     Indication: DIARRHOEA
     Route: 048
     Dates: start: 20070324, end: 20070414
  6. DIGIMERCK [Concomitant]
     Indication: ATRIAL FIBRILLATION
     Dosage: .1MG UNKNOWN
     Route: 048
  7. METOPROLOL SUCCINATE [Concomitant]
     Indication: CARDIAC FAILURE
     Dosage: 47.5MG UNKNOWN
     Route: 048
  8. PLAVIX [Concomitant]
     Indication: CORONARY ARTERY DISEASE
     Dosage: 75MG UNKNOWN
     Route: 048
  9. PASPERTIN [Concomitant]
     Indication: NAUSEA
     Route: 048
     Dates: start: 20070330, end: 20070414

REACTIONS (3)
  - DRUG INTERACTION [None]
  - HEPARIN-INDUCED THROMBOCYTOPENIA [None]
  - THROMBOSIS [None]
